FAERS Safety Report 20988338 (Version 1)
Quarter: 2022Q2

REPORT INFORMATION
  Report Type: Spontaneous
  Country: CA (occurrence: None)
  Receive Date: 20220621
  Receipt Date: 20220621
  Transmission Date: 20220720
  Serious: Yes (Other)
  Sender: FDA-Public Use
  Company Number: CA-ROCHE-3118682

PATIENT
  Age: 29 Year
  Sex: Female
  Weight: 109 kg

DRUGS (11)
  1. RITUXIMAB [Suspect]
     Active Substance: RITUXIMAB
     Indication: Systemic lupus erythematosus
     Dosage: DRUG DOSE FIRST ADMINISTERED IS NOT PROVIDED
     Route: 041
  2. RITUXIMAB [Suspect]
     Active Substance: RITUXIMAB
     Dosage: DRUG DOSE FIRST ADMINISTERED IS 1000.0 MILLIGRAM
     Route: 041
  3. METHOTREXATE [Concomitant]
     Active Substance: METHOTREXATE
  4. HYDROXYCHLOROQUINE SULFATE [Concomitant]
     Active Substance: HYDROXYCHLOROQUINE SULFATE
  5. AZATHIOPRINE [Concomitant]
     Active Substance: AZATHIOPRINE
  6. CALCIUM [Concomitant]
     Active Substance: CALCIUM
  7. IBUPROFEN [Concomitant]
     Active Substance: IBUPROFEN
  8. CYCLOSPORINE [Concomitant]
     Active Substance: CYCLOSPORINE
  9. AMITRIPTYLINE [Concomitant]
     Active Substance: AMITRIPTYLINE
  10. ESOMEPRAZOLE [Concomitant]
     Active Substance: ESOMEPRAZOLE
  11. PREDNISONE [Concomitant]
     Active Substance: PREDNISONE

REACTIONS (17)
  - Swelling face [Not Recovered/Not Resolved]
  - Chest pain [Not Recovered/Not Resolved]
  - Hypertension [Not Recovered/Not Resolved]
  - Pain in extremity [Not Recovered/Not Resolved]
  - Anxiety [Not Recovered/Not Resolved]
  - Fatigue [Not Recovered/Not Resolved]
  - Weight increased [Not Recovered/Not Resolved]
  - Urinary tract infection [Not Recovered/Not Resolved]
  - Blood pressure increased [Not Recovered/Not Resolved]
  - Off label use [Unknown]
  - Erythema [Not Recovered/Not Resolved]
  - Insomnia [Not Recovered/Not Resolved]
  - Ear infection [Not Recovered/Not Resolved]
  - Sinusitis [Not Recovered/Not Resolved]
  - Depressed mood [Not Recovered/Not Resolved]
  - Arthralgia [Not Recovered/Not Resolved]
  - Skin disorder [Not Recovered/Not Resolved]
